FAERS Safety Report 24547520 (Version 5)
Quarter: 2025Q1

REPORT INFORMATION
  Report Type: Spontaneous
  Country: JP (occurrence: JP)
  Receive Date: 20241025
  Receipt Date: 20250327
  Transmission Date: 20250408
  Serious: Yes (Hospitalization)
  Sender: AMGEN
  Company Number: JP-KYOWAKIRIN-2024KK023645

PATIENT
  Age: 28 Year
  Sex: Female

DRUGS (11)
  1. PEGFILGRASTIM [Suspect]
     Active Substance: PEGFILGRASTIM
     Indication: Colony stimulating factor therapy
     Route: 058
     Dates: start: 20240718, end: 20241008
  2. PACLITAXEL [Suspect]
     Active Substance: PACLITAXEL
     Indication: Breast cancer
     Dosage: 269.325 MG, 1X/2 WEEKS
     Route: 042
     Dates: start: 20240910, end: 20241008
  3. Hachiazule [Concomitant]
     Indication: Product used for unknown indication
     Route: 048
  4. METHYLCOBALAMIN [Concomitant]
     Active Substance: METHYLCOBALAMIN
     Indication: Product used for unknown indication
     Route: 065
  5. FEXOFENADINE HYDROCHLORIDE [Concomitant]
     Active Substance: FEXOFENADINE HYDROCHLORIDE
     Indication: Product used for unknown indication
     Route: 048
  6. SULFAMETHOXAZOLE\TRIMETHOPRIM [Concomitant]
     Active Substance: SULFAMETHOXAZOLE\TRIMETHOPRIM
     Indication: Product used for unknown indication
     Route: 048
  7. HERBALS [Concomitant]
     Active Substance: HERBALS
     Indication: Product used for unknown indication
     Route: 048
  8. HERBALS [Concomitant]
     Active Substance: HERBALS
     Indication: Product used for unknown indication
     Route: 048
  9. FAMOTIDINE [Concomitant]
     Active Substance: FAMOTIDINE
     Indication: Breast cancer
     Dosage: 20 MG, 1X/2 WEEKS
     Route: 042
     Dates: start: 20240910, end: 20241008
  10. DEXAMETHASONE SODIUM PHOSPHATE [Concomitant]
     Active Substance: DEXAMETHASONE SODIUM PHOSPHATE
     Indication: Breast cancer
     Dosage: 20 MG, 1X/2 WEEKS
     Route: 042
     Dates: start: 20240910, end: 20241008
  11. KYTRIL [Concomitant]
     Active Substance: GRANISETRON HYDROCHLORIDE
     Indication: Breast cancer
     Dosage: 3 MG, 1X/2 WEEKS
     Route: 042
     Dates: start: 20240910, end: 20241008

REACTIONS (3)
  - Drug eruption [Recovered/Resolved]
  - Off label use [Unknown]
  - Chemotherapy [Unknown]

NARRATIVE: CASE EVENT DATE: 20241008
